FAERS Safety Report 4390708-9 (Version None)
Quarter: 2004Q3

REPORT INFORMATION
  Report Type: 
  Country: None (occurrence: None)
  Receive Date: 20040701
  Receipt Date: 20040622
  Transmission Date: 20050211
  Serious: Yes (Other)
  Sender: FDA-Public Use
  Company Number: 2004042026

PATIENT
  Age: 24 Year
  Sex: Male

DRUGS (14)
  1. SUDAFED PEDIATRIC NASAL DECONGESTANT (PSEUDOEPHEDRINE) [Suspect]
     Dosage: PRN, ORAL
     Route: 048
  2. LEVETIRACETAM [Concomitant]
  3. VALPROATE SODIUM [Concomitant]
  4. PHENOBARBITAL TAB [Concomitant]
  5. RANITIDINE HYDROCHLORIDE [Concomitant]
  6. FLUTICASONE PROPIONATE [Concomitant]
  7. BACLOFEN [Concomitant]
  8. LEVOSALBUTAMOL (LEVOSALBUTAMOL) [Concomitant]
  9. GUAIFENESIN (GUAIFENESIN) [Concomitant]
  10. CROMOGLICATE SODIUM (CROMOGLICATE SODIUM) [Concomitant]
  11. LORATADINE [Concomitant]
  12. MONTELUKAST SODIUM (MONTELUKAST SODIUM) [Concomitant]
  13. SORBITOL (SORBITOL) [Concomitant]
  14. MACROGOL (MACROGOL) [Concomitant]

REACTIONS (2)
  - CONDITION AGGRAVATED [None]
  - CONVULSION [None]
